FAERS Safety Report 11233459 (Version 1)
Quarter: 2015Q3

REPORT INFORMATION
  Report Type: Spontaneous
  Country: IT (occurrence: IT)
  Receive Date: 20150702
  Receipt Date: 20150702
  Transmission Date: 20151125
  Serious: Yes (Hospitalization)
  Sender: FDA-Public Use
  Company Number: IT-ASTRAZENECA-2015SE63069

PATIENT
  Age: 17116 Day
  Sex: Male

DRUGS (3)
  1. PROZAC [Concomitant]
     Active Substance: FLUOXETINE HYDROCHLORIDE
     Route: 048
     Dates: start: 20150522, end: 20150624
  2. LUCEN [Suspect]
     Active Substance: ESOMEPRAZOLE
     Indication: GASTROOESOPHAGEAL REFLUX DISEASE
     Route: 048
     Dates: start: 20150429, end: 20150615
  3. PROTIADEN [Concomitant]
     Active Substance: DOTHIEPIN HYDROCHLORIDE
     Route: 048
     Dates: start: 20150515, end: 20150624

REACTIONS (4)
  - Petechiae [Recovered/Resolved]
  - Thrombocytopenia [Recovered/Resolved]
  - Mouth haemorrhage [Recovered/Resolved]
  - Epistaxis [Recovered/Resolved]

NARRATIVE: CASE EVENT DATE: 20150615
